FAERS Safety Report 25233084 (Version 3)
Quarter: 2025Q2

REPORT INFORMATION
  Report Type: Spontaneous
  Country: ES (occurrence: ES)
  Receive Date: 20250424
  Receipt Date: 20250613
  Transmission Date: 20250716
  Serious: Yes (Other)
  Sender: ABBVIE
  Company Number: None

PATIENT
  Age: 40 Year
  Sex: Female

DRUGS (10)
  1. BOTULINUM TOXIN TYPE A [Suspect]
     Active Substance: BOTULINUM TOXIN TYPE A
     Indication: Migraine
     Route: 058
     Dates: start: 20211025, end: 20211025
  2. BOTULINUM TOXIN TYPE A [Suspect]
     Active Substance: BOTULINUM TOXIN TYPE A
     Indication: Migraine
     Route: 058
     Dates: start: 20230109, end: 20230109
  3. CLOPIDOGREL [Suspect]
     Active Substance: CLOPIDOGREL BISULFATE
     Indication: Antiphospholipid syndrome
     Dosage: CUMULATIVE DOSE: 100125 MG
     Route: 048
     Dates: start: 20190715, end: 20230310
  4. NIMODIPINE [Suspect]
     Active Substance: NIMODIPINE
     Indication: Headache
     Dosage: CUMULATIVE DOSE: 350190 MG
     Route: 048
     Dates: start: 20120715, end: 20230310
  5. AMITRIPTYLINE HYDROCHLORIDE [Suspect]
     Active Substance: AMITRIPTYLINE HYDROCHLORIDE
     Indication: Migraine
     Dosage: CUMULATIVE DOSE: 10910 MG
     Route: 048
     Dates: start: 20200115, end: 20230313
  6. ALMOTRIPTAN [Suspect]
     Active Substance: ALMOTRIPTAN
     Indication: Migraine
     Route: 048
     Dates: start: 20200315, end: 20230313
  7. CANDESARTAN [Suspect]
     Active Substance: CANDESARTAN
     Indication: Migraine
     Dosage: CUMULATIVE DOSE: 3344 MG
     Route: 048
     Dates: start: 20220615, end: 20230109
  8. PAROXETINE [Suspect]
     Active Substance: PAROXETINE
     Indication: Migraine
     Dosage: CUMULATIVE DOSE: 20620 MG
     Route: 048
     Dates: start: 20200315, end: 20230313
  9. TRAZODONE HYDROCHLORIDE [Suspect]
     Active Substance: TRAZODONE HYDROCHLORIDE
     Indication: Migraine
     Dosage: CUMULATIVE DOSE: 27200 MG
     Route: 048
     Dates: start: 20220615, end: 20230313
  10. AJOVY [Suspect]
     Active Substance: FREMANEZUMAB-VFRM
     Indication: Migraine
     Dosage: 225 MG INJECTABLE SOLUTION IN PRE-FILLED PEN, 1 PRE-FILLED PEN
     Route: 058
     Dates: start: 20221011, end: 20230109

REACTIONS (3)
  - Abortion missed [Unknown]
  - Maternal exposure during pregnancy [Unknown]
  - Product use in unapproved indication [Unknown]

NARRATIVE: CASE EVENT DATE: 20230109
